FAERS Safety Report 15829033 (Version 1)
Quarter: 2019Q1

REPORT INFORMATION
  Report Type: Spontaneous
  Country: US (occurrence: US)
  Receive Date: 20190115
  Receipt Date: 20190115
  Transmission Date: 20190417
  Serious: No
  Sender: FDA-Public Use
  Company Number: US-ALLERGAN-1830308US

PATIENT
  Sex: Female

DRUGS (1)
  1. RESTASIS [Suspect]
     Active Substance: CYCLOSPORINE
     Indication: BLEPHARITIS
     Dosage: 2 GTT, BID
     Route: 047
     Dates: start: 201805, end: 201805

REACTIONS (4)
  - Eye irritation [Recovered/Resolved]
  - Hypersensitivity [Recovered/Resolved]
  - Ocular hyperaemia [Recovered/Resolved]
  - Off label use [Unknown]
